FAERS Safety Report 16203990 (Version 3)
Quarter: 2019Q2

REPORT INFORMATION
  Report Type: Report from Study
  Country: US (occurrence: US)
  Receive Date: 20190416
  Receipt Date: 20190510
  Transmission Date: 20190711
  Serious: Yes (Hospitalization, Other)
  Sender: FDA-Public Use
  Company Number: US-GILEAD-2019-0401684

PATIENT
  Age: 64 Year
  Sex: Male
  Weight: 90.4 kg

DRUGS (11)
  1. MESNA. [Suspect]
     Active Substance: MESNA
     Indication: PROPHYLAXIS
     Dosage: 210 MG, BID
     Route: 042
     Dates: start: 20181017, end: 20181019
  2. LEVAQUIN [Concomitant]
     Active Substance: LEVOFLOXACIN
  3. FLUDARABINE [Suspect]
     Active Substance: FLUDARABINE PHOSPHATE
     Indication: BONE MARROW CONDITIONING REGIMEN
     Dosage: 30 MG/M2, QD
     Route: 042
     Dates: start: 20181017, end: 20181019
  4. VALACYCLOVIR [Concomitant]
     Active Substance: VALACYCLOVIR HYDROCHLORIDE
     Dosage: 500,MG,DAILY
     Route: 048
     Dates: start: 20181016
  5. COMPAZINE [Concomitant]
     Active Substance: PROCHLORPERAZINE MALEATE
     Dosage: 10,MG,AS NECESSARY
     Route: 048
     Dates: start: 20181017
  6. LEVOTHYROXINE SODIUM. [Concomitant]
     Active Substance: LEVOTHYROXINE SODIUM
     Dosage: 75,UG,DAILY
     Route: 048
     Dates: start: 20181105
  7. ALLOPURINOL. [Concomitant]
     Active Substance: ALLOPURINOL
     Dosage: 200,MG,DAILY
     Route: 048
     Dates: start: 20181017
  8. BACTRIM DS [Concomitant]
     Active Substance: SULFAMETHOXAZOLE\TRIMETHOPRIM
     Dosage: ,MG,DAILY
     Route: 048
     Dates: start: 20180823
  9. ONDANSETRON [Concomitant]
     Active Substance: ONDANSETRON
     Dosage: 4,MG,AS NECESSARY
     Route: 048
     Dates: start: 20181017
  10. AXICABTAGENE CILOLEUCEL [Suspect]
     Active Substance: AXICABTAGENE CILOLEUCEL
     Indication: B-CELL LYMPHOMA
     Dosage: 68 ML, ONCE
     Route: 042
     Dates: start: 20181022, end: 20181022
  11. CYCLOPHOSPHAMIDE. [Suspect]
     Active Substance: CYCLOPHOSPHAMIDE
     Indication: BONE MARROW CONDITIONING REGIMEN
     Dosage: 500 MG/M2, QD
     Route: 042
     Dates: start: 20181017, end: 20181019

REACTIONS (1)
  - Pneumonia [Recovered/Resolved]

NARRATIVE: CASE EVENT DATE: 20190216
